FAERS Safety Report 10712884 (Version 1)
Quarter: 2015Q1

REPORT INFORMATION
  Report Type: Report from Study
  Country: AT (occurrence: AT)
  Receive Date: 20150115
  Receipt Date: 20150115
  Transmission Date: 20150721
  Serious: Yes (Hospitalization)
  Sender: FDA-Public Use
  Company Number: AT-CELGENE-009-21880-09092283

PATIENT
  Age: 72 Year
  Sex: Female

DRUGS (29)
  1. MYCOSTATIN [Concomitant]
     Active Substance: NYSTATIN
     Indication: PROPHYLAXIS
     Route: 048
     Dates: start: 20090910, end: 20090928
  2. MOVICOL [Concomitant]
     Active Substance: POLYETHYLENE GLYCOL 3350\POTASSIUM CHLORIDE\SODIUM BICARBONATE\SODIUM CHLORIDE
     Indication: CONSTIPATION PROPHYLAXIS
     Route: 048
     Dates: start: 20091004, end: 20091108
  3. HALCION [Concomitant]
     Active Substance: TRIAZOLAM
     Indication: BONE PAIN
     Route: 048
     Dates: start: 20090929, end: 20090929
  4. VITAMINS WITH MINERALS [Concomitant]
     Active Substance: MINERALS\VITAMINS
     Indication: HYPOCALCAEMIA
     Route: 048
     Dates: start: 20091001
  5. VITAMINS WITH MINERALS [Concomitant]
     Active Substance: MINERALS\VITAMINS
     Indication: PROPHYLAXIS
  6. DUROGESIC [Concomitant]
     Active Substance: FENTANYL
     Indication: BONE PAIN
     Dosage: 1 DOSAGE FORMS
     Route: 062
     Dates: start: 20090929
  7. PASPERTIN [Concomitant]
     Active Substance: METOCLOPRAMIDE HYDROCHLORIDE
     Indication: PROPHYLAXIS
     Dosage: GTT
     Route: 048
     Dates: start: 20090929
  8. ERYPO [Concomitant]
     Indication: ANAEMIA
     Route: 058
     Dates: start: 20091002, end: 20091019
  9. GUTTALAX [Concomitant]
     Indication: CONSTIPATION
     Dosage: GTT
     Route: 048
     Dates: start: 20091002, end: 20091002
  10. NORVASC [Concomitant]
     Active Substance: AMLODIPINE BESYLATE
     Indication: HYPERTENSION
     Route: 048
  11. MYCOSTATIN [Concomitant]
     Active Substance: NYSTATIN
     Route: 048
  12. CEVITOL [Concomitant]
     Indication: ASTHENIA
     Route: 041
     Dates: start: 20090929, end: 20090929
  13. ANTIFLAT [Concomitant]
     Indication: ABDOMINAL DISTENSION
     Dosage: 400 MILLIGRAM
     Route: 048
     Dates: start: 20091001, end: 20091001
  14. REVLIMID [Suspect]
     Active Substance: LENALIDOMIDE
     Indication: PLASMA CELL MYELOMA
     Route: 048
     Dates: start: 20090901, end: 20091013
  15. DEXAMETHASONE. [Suspect]
     Active Substance: DEXAMETHASONE
     Indication: ACUTE MYELOID LEUKAEMIA
     Route: 048
     Dates: start: 20090901, end: 20091007
  16. TRICEF [Concomitant]
     Indication: ANTIBIOTIC PROPHYLAXIS
     Dosage: 60 OTHER
     Route: 048
     Dates: start: 20090910, end: 20090928
  17. DEXAMETHASONE. [Suspect]
     Active Substance: DEXAMETHASONE
     Route: 065
     Dates: end: 20091119
  18. OMNIFLORA [Concomitant]
     Indication: ABDOMINAL HERNIA
     Route: 048
     Dates: start: 20090907, end: 20090929
  19. RINGER [Concomitant]
     Indication: FLUID REPLACEMENT
     Dosage: .25 MILLIGRAM
     Route: 041
     Dates: start: 20090930, end: 20091005
  20. GLANDOMED [Concomitant]
     Indication: PROPHYLAXIS
     Route: 048
  21. LOVENOX [Concomitant]
     Active Substance: ENOXAPARIN SODIUM
     Indication: PROPHYLAXIS
     Route: 058
  22. REVLIMID [Suspect]
     Active Substance: LENALIDOMIDE
     Route: 048
     Dates: start: 20091029, end: 20091118
  23. PANTOLOC [Concomitant]
     Active Substance: PANTOPRAZOLE SODIUM
     Indication: PROPHYLAXIS AGAINST GASTROINTESTINAL ULCER
     Route: 048
  24. AREDIA [Concomitant]
     Active Substance: PAMIDRONATE DISODIUM
     Indication: OSTEOLYSIS
     Route: 065
     Dates: start: 20090922
  25. TRICEF [Concomitant]
     Indication: PNEUMONIA
     Route: 065
  26. TRICEF [Concomitant]
     Indication: URINARY TRACT INFECTION
  27. LAEVOLAC [Concomitant]
     Active Substance: LACTULOSE
     Indication: CONSTIPATION PROPHYLAXIS
     Dosage: 1000 MILLILITER
     Route: 048
     Dates: start: 20091001
  28. MAGNOSOLV [Concomitant]
     Indication: MUSCLE SPASMS
     Route: 048
     Dates: start: 20090908
  29. GLANDOMED [Concomitant]
     Indication: MUCOSAL INFLAMMATION
     Dosage: 288 MICROGRAM
     Route: 048
     Dates: start: 20090910

REACTIONS (6)
  - Acute kidney injury [Recovered/Resolved with Sequelae]
  - Oesophagitis [Recovered/Resolved]
  - Bone pain [Recovered/Resolved]
  - Pneumonia [Recovered/Resolved]
  - Pneumonia [Unknown]
  - Urinary tract infection [Recovered/Resolved]

NARRATIVE: CASE EVENT DATE: 20091012
